FAERS Safety Report 13069307 (Version 2)
Quarter: 2017Q1

REPORT INFORMATION
  Report Type: Report from Study
  Country: None (occurrence: US)
  Receive Date: 20161228
  Receipt Date: 20170223
  Transmission Date: 20170428
  Serious: Yes (Hospitalization, Other)
  Sender: FDA-Public Use
  Company Number: US-ABBVIE-16K-163-1817568-00

PATIENT
  Sex: Male

DRUGS (1)
  1. HUMIRA [Suspect]
     Active Substance: ADALIMUMAB
     Indication: CROHN^S DISEASE
     Route: 058
     Dates: end: 20170208

REACTIONS (4)
  - Nasal septum deviation [Unknown]
  - Clostridium difficile infection [Unknown]
  - Gastrointestinal inflammation [Unknown]
  - Intestinal obstruction [Unknown]
